FAERS Safety Report 21640021 (Version 1)
Quarter: 2022Q4

REPORT INFORMATION
  Report Type: Spontaneous
  Country: SI (occurrence: SI)
  Receive Date: 20221124
  Receipt Date: 20221124
  Transmission Date: 20230113
  Serious: Yes (Hospitalization, Other)
  Sender: FDA-Public Use
  Company Number: SI-009507513-2211SVN006760

PATIENT
  Age: 59 Year
  Sex: Female

DRUGS (1)
  1. PEMBROLIZUMAB [Suspect]
     Active Substance: PEMBROLIZUMAB
     Indication: Malignant melanoma
     Dosage: UNK
     Dates: start: 202107, end: 202201

REACTIONS (12)
  - Metabolic encephalopathy [Unknown]
  - COVID-19 [Unknown]
  - Parosmia [Unknown]
  - Dehydration [Unknown]
  - Insomnia [Unknown]
  - Encephalitis [Unknown]
  - Nausea [Unknown]
  - Decreased appetite [Unknown]
  - Vomiting [Unknown]
  - Hypophysitis [Unknown]
  - Ill-defined disorder [Unknown]
  - Confusional state [Unknown]

NARRATIVE: CASE EVENT DATE: 20220101
